FAERS Safety Report 11223724 (Version 1)
Quarter: 2015Q2

REPORT INFORMATION
  Report Type: Spontaneous
  Country: SE (occurrence: SE)
  Receive Date: 20150629
  Receipt Date: 20150629
  Transmission Date: 20150821
  Serious: Yes (Death)
  Sender: FDA-Public Use
  Company Number: SE-ROCHE-1599268

PATIENT
  Age: 71 Year
  Sex: Female

DRUGS (2)
  1. MABTHERA [Suspect]
     Active Substance: RITUXIMAB
     Indication: RHEUMATOID ARTHRITIS
     Dosage: MOST RECENT DOSE ON 04/MAY/2015.
     Route: 065
     Dates: start: 20121026
  2. METHOTREXATE [Suspect]
     Active Substance: METHOTREXATE
     Indication: RHEUMATOID ARTHRITIS
     Dosage: MOST RECENT DOSE ON 04/MAY/2015.
     Route: 065
     Dates: start: 19981119

REACTIONS (3)
  - Bladder cancer [Fatal]
  - Metastases to liver [Fatal]
  - Metastases to lung [Fatal]

NARRATIVE: CASE EVENT DATE: 20150504
